FAERS Safety Report 10895773 (Version 4)
Quarter: 2015Q2

REPORT INFORMATION
  Report Type: Report from Study
  Country: US (occurrence: US)
  Receive Date: 20150307
  Receipt Date: 20150428
  Transmission Date: 20150821
  Serious: Yes (Hospitalization)
  Sender: FDA-Public Use
  Company Number: US-BIOGENIDEC-2015BI028376

PATIENT
  Age: 52 Year
  Sex: Female
  Weight: 54 kg

DRUGS (13)
  1. VITAMIN E [Concomitant]
     Active Substance: .ALPHA.-TOCOPHEROL
  2. CRANBERRY. [Concomitant]
     Active Substance: CRANBERRY
  3. LIPITOR [Concomitant]
     Active Substance: ATORVASTATIN CALCIUM
  4. AMPYRA [Concomitant]
     Active Substance: DALFAMPRIDINE
  5. TRAMADOL [Concomitant]
     Active Substance: TRAMADOL
  6. CIPRO [Concomitant]
     Active Substance: CIPROFLOXACIN HYDROCHLORIDE
  7. MILK THISTLE [Concomitant]
     Active Substance: MILK THISTLE
  8. POLYTRIM [Concomitant]
     Active Substance: POLYMYXIN B SULFATE\TRIMETHOPRIM SULFATE
  9. TYSABRI [Suspect]
     Active Substance: NATALIZUMAB
     Indication: MULTIPLE SCLEROSIS
     Route: 042
     Dates: start: 20141226, end: 20150227
  10. OMEGA3 [Concomitant]
  11. VITAMIN D [Concomitant]
     Active Substance: CHOLECALCIFEROL
  12. ASPIRIN. [Concomitant]
     Active Substance: ASPIRIN
  13. VITAMIN C [Concomitant]
     Active Substance: ASCORBIC ACID

REACTIONS (10)
  - Spinal fusion surgery [Unknown]
  - Vomiting [Recovered/Resolved]
  - Fatigue [Unknown]
  - Intervertebral disc protrusion [Unknown]
  - Cervical cord compression [Unknown]
  - Blood immunoglobulin G [Unknown]
  - Post procedural complication [Unknown]
  - Infection [Unknown]
  - General physical health deterioration [Unknown]
  - Intervertebral disc disorder [Recovered/Resolved]

NARRATIVE: CASE EVENT DATE: 201502
